FAERS Safety Report 11047239 (Version 1)
Quarter: 2015Q2

REPORT INFORMATION
  Report Type: Spontaneous
  Country: NL (occurrence: NL)
  Receive Date: 20150420
  Receipt Date: 20150420
  Transmission Date: 20150821
  Serious: Yes (Other)
  Sender: FDA-Public Use
  Company Number: NL-TEVA-555737ISR

PATIENT
  Age: 44 Year
  Sex: Female
  Weight: 72 kg

DRUGS (4)
  1. CITALOPRAM TABLET OMHULD 20MG [Concomitant]
     Dosage: ONCE DAILY 2 PIECES
     Route: 048
     Dates: start: 1998
  2. METHOTREXATE (METHOTREXATE SODIUM) [Suspect]
     Active Substance: METHOTREXATE SODIUM
     Indication: UVEITIS
     Dosage: 1.5 TABLET
     Route: 048
     Dates: start: 201403
  3. PARACETAMOL/CODEINE CAPSULE 500/10MG [Concomitant]
     Dosage: TWICE DAILY ONE PIECE
     Route: 048
     Dates: start: 200802
  4. HUMIRA 40 INJVLST 50MG/ML PEN 0,8ML [Concomitant]
     Dosage: ONCE EVERY 2 WEEKS
     Route: 058
     Dates: start: 2009

REACTIONS (5)
  - Nausea [Recovering/Resolving]
  - Muscle twitching [Recovered/Resolved]
  - Suicidal ideation [Recovering/Resolving]
  - Fatigue [Recovering/Resolving]
  - Depression [Recovering/Resolving]

NARRATIVE: CASE EVENT DATE: 201404
